FAERS Safety Report 6511368-4 (Version None)
Quarter: 2009Q4

REPORT INFORMATION
  Report Type: 
  Country: None (occurrence: None)
  Receive Date: 20091222
  Receipt Date: 20090305
  Transmission Date: 20100525
  Serious: Yes (Other)
  Sender: FDA-Public Use
  Company Number: US-ASTRAZENECA-2009UW05924

PATIENT
  Age: 63 Year
  Sex: Male

DRUGS (7)
  1. CRESTOR [Suspect]
     Route: 048
     Dates: start: 20080218
  2. ASPIRIN [Concomitant]
  3. VITAMIN D [Concomitant]
  4. MICARDIS HCT [Concomitant]
     Dosage: 80/12.5
  5. CYMBALTA [Concomitant]
  6. ALPRAZOLAM [Concomitant]
  7. ATORVASTATIN CALCIUM [Concomitant]
     Dates: end: 20080218

REACTIONS (1)
  - BLOOD CREATINE PHOSPHOKINASE INCREASED [None]
